FAERS Safety Report 15982104 (Version 1)
Quarter: 2019Q1

REPORT INFORMATION
  Report Type: Spontaneous
  Country: CN (occurrence: CN)
  Receive Date: 20190219
  Receipt Date: 20190219
  Transmission Date: 20190418
  Serious: Yes (Disabling)
  Sender: FDA-Public Use
  Company Number: CN-JNJFOC-20190218949

PATIENT
  Age: 27 Year
  Sex: Female
  Weight: 55 kg

DRUGS (2)
  1. GLYCYRRHIZIC ACID [Suspect]
     Active Substance: GLYCYRRHIZIN
     Indication: HEPATIC FUNCTION ABNORMAL
     Route: 048
     Dates: start: 20180827, end: 20180904
  2. SPORANOX [Suspect]
     Active Substance: ITRACONAZOLE
     Indication: DERMATOPHYTOSIS OF NAIL
     Route: 048
     Dates: start: 20180827, end: 20180904

REACTIONS (1)
  - Drug eruption [Recovering/Resolving]

NARRATIVE: CASE EVENT DATE: 20180904
